FAERS Safety Report 25694776 (Version 1)
Quarter: 2025Q3

REPORT INFORMATION
  Report Type: Spontaneous
  Country: LB (occurrence: LB)
  Receive Date: 20250818
  Receipt Date: 20250818
  Transmission Date: 20251021
  Serious: Yes (Hospitalization)
  Sender: NOVO NORDISK
  Company Number: LB-NOVOPROD-1497757

PATIENT
  Age: 80 Year
  Sex: Male

DRUGS (2)
  1. INSULIN HUMAN [Suspect]
     Active Substance: INSULIN HUMAN
     Route: 058
  2. INSULIN HUMAN [Suspect]
     Active Substance: INSULIN HUMAN
     Indication: Diabetes mellitus
     Route: 058

REACTIONS (2)
  - Urinary tract infection [Unknown]
  - Hypoglycaemia [Recovered/Resolved]
